FAERS Safety Report 21395690 (Version 1)
Quarter: 2022Q3

REPORT INFORMATION
  Report Type: Spontaneous
  Country: JP (occurrence: JP)
  Receive Date: 20220930
  Receipt Date: 20220930
  Transmission Date: 20221026
  Serious: Yes (Hospitalization)
  Sender: FDA-Public Use
  Company Number: JP-ASTELLAS-2022JP014476

PATIENT
  Age: 78 Year
  Sex: Female

DRUGS (1)
  1. PADCEV [Suspect]
     Active Substance: ENFORTUMAB VEDOTIN-EJFV
     Indication: Ureteric cancer
     Route: 041
     Dates: start: 20220920, end: 20220926

REACTIONS (2)
  - Eastern Cooperative Oncology Group performance status worsened [Unknown]
  - Diarrhoea [Not Recovered/Not Resolved]
